FAERS Safety Report 7951531-9 (Version None)
Quarter: 2011Q4

REPORT INFORMATION
  Report Type: 
  Country: None (occurrence: None)
  Receive Date: 20111201
  Receipt Date: 20111123
  Transmission Date: 20120403
  Serious: Yes (Other)
  Sender: FDA-Public Use
  Company Number: GB-JNJFOC-20111111356

PATIENT
  Sex: Female

DRUGS (1)
  1. NICOTINE [Suspect]
     Indication: SMOKING CESSATION THERAPY
     Dosage: FOR ABOUT THREE YEARS
     Route: 048

REACTIONS (3)
  - RETCHING [None]
  - INTENTIONAL DRUG MISUSE [None]
  - DEPENDENCE [None]
